FAERS Safety Report 20363921 (Version 1)
Quarter: 2022Q1

REPORT INFORMATION
  Report Type: Spontaneous
  Country: US (occurrence: None)
  Receive Date: 20220120
  Receipt Date: 20220120
  Transmission Date: 20220423
  Serious: No
  Sender: FDA-Public Use
  Company Number: None

PATIENT

DRUGS (1)
  1. PRAZOSIN [Suspect]
     Active Substance: PRAZOSIN

REACTIONS (3)
  - Breast enlargement [None]
  - Confusional state [None]
  - Nightmare [None]
